FAERS Safety Report 4848916-6 (Version None)
Quarter: 2005Q4

REPORT INFORMATION
  Report Type: 
  Country: None (occurrence: None)
  Receive Date: 20051208
  Receipt Date: 20051006
  Transmission Date: 20060501
  Serious: Yes (Hospitalization, Disabling)
  Sender: FDA-Public Use
  Company Number: US-MERCK-0510USA04875

PATIENT
  Age: 52 Year
  Sex: Male
  Weight: 106 kg

DRUGS (3)
  1. VIOXX [Suspect]
     Indication: OSTEOARTHRITIS
     Route: 048
     Dates: start: 20020101, end: 20020926
  2. VIOXX [Suspect]
     Indication: MENISCUS LESION
     Route: 048
     Dates: start: 20020101, end: 20020926
  3. LOPRESSOR [Suspect]
     Route: 048

REACTIONS (7)
  - BLOOD PRESSURE INADEQUATELY CONTROLLED [None]
  - CORONARY ARTERY DISEASE [None]
  - DIZZINESS [None]
  - HERPES ZOSTER [None]
  - HYPERTENSION [None]
  - MYOCARDIAL INFARCTION [None]
  - POST HERPETIC NEURALGIA [None]
